FAERS Safety Report 18425626 (Version 1)
Quarter: 2020Q4

REPORT INFORMATION
  Report Type: Report from Study
  Country: BR (occurrence: BR)
  Receive Date: 20201026
  Receipt Date: 20201026
  Transmission Date: 20210114
  Serious: Yes (Other)
  Sender: FDA-Public Use
  Company Number: BR-TEVA-2020-BR-1842732

PATIENT
  Age: 27 Year
  Sex: Male

DRUGS (1)
  1. COPAXONE [Suspect]
     Active Substance: GLATIRAMER ACETATE
     Indication: MULTIPLE SCLEROSIS
     Route: 065
     Dates: start: 202006

REACTIONS (6)
  - Hyperhidrosis [Recovered/Resolved]
  - Syncope [Recovered/Resolved]
  - Tremor [Recovered/Resolved]
  - Taste disorder [Recovered/Resolved]
  - Seizure like phenomena [Recovered/Resolved]
  - Injection site pain [Recovered/Resolved]

NARRATIVE: CASE EVENT DATE: 20201018
